FAERS Safety Report 9118352 (Version 1)
Quarter: 2013Q1

REPORT INFORMATION
  Report Type: Spontaneous
  Country: US (occurrence: None)
  Receive Date: 20130221
  Receipt Date: 20130221
  Transmission Date: 20140127
  Serious: Yes (Life-Threatening, Hospitalization)
  Sender: FDA-Public Use
  Company Number: None

PATIENT
  Age: 65 Year
  Sex: Male
  Weight: 66.8 kg

DRUGS (1)
  1. ETODOLAC [Suspect]
     Indication: PAIN
     Route: 048
     Dates: start: 20100720, end: 20121127

REACTIONS (2)
  - Upper gastrointestinal haemorrhage [None]
  - Anaemia [None]
